FAERS Safety Report 4553713-5 (Version None)
Quarter: 2004Q4

REPORT INFORMATION
  Report Type: 
  Country: None (occurrence: None)
  Receive Date: 20041230
  Receipt Date: 20040727
  Transmission Date: 20050328
  Serious: Yes (Hospitalization)
  Sender: FDA-Public Use
  Company Number: 04-07-1075

PATIENT
  Age: 43 Year
  Sex: Female

DRUGS (10)
  1. CLOZAPINE [Suspect]
     Indication: SCHIZOPHRENIA
     Dosage: 300MG QHS ORAL
     Route: 048
     Dates: start: 20010601
  2. PROLOXIN DECANOATE [Concomitant]
  3. COGENTIN [Concomitant]
  4. CELEXA [Concomitant]
  5. PREVACID [Concomitant]
  6. BENZTROPINE MESYLATE [Concomitant]
  7. DITROPAN [Concomitant]
  8. ADVAIR DISKUS 100/50 [Concomitant]
  9. HYDROCHLOROTHIAZIDE [Concomitant]
  10. SINGULAIR [Concomitant]

REACTIONS (1)
  - PRE-EXISTING DISEASE [None]
